FAERS Safety Report 19331990 (Version 2)
Quarter: 2021Q3

REPORT INFORMATION
  Report Type: Spontaneous
  Country: JP (occurrence: JP)
  Receive Date: 20210529
  Receipt Date: 20210703
  Transmission Date: 20211014
  Serious: Yes (Hospitalization, Other)
  Sender: FDA-Public Use
  Company Number: JP-BYBET-JP-2021-YPL-00037

PATIENT

DRUGS (2)
  1. ANASTROZOLE. [Suspect]
     Active Substance: ANASTROZOLE
     Indication: INFLAMMATORY CARCINOMA OF THE BREAST
     Dosage: 5TH COURSE OF CHEMOTHERAPY
  2. TRASTUZUMAB. [Suspect]
     Active Substance: TRASTUZUMAB
     Indication: INFLAMMATORY CARCINOMA OF THE BREAST
     Dosage: 5TH COURSE OF CHEMOTHERAPY

REACTIONS (1)
  - Interstitial lung disease [Recovering/Resolving]
